FAERS Safety Report 14323610 (Version 3)
Quarter: 2018Q1

REPORT INFORMATION
  Report Type: Report from Study
  Country: CZ (occurrence: CZ)
  Receive Date: 20171226
  Receipt Date: 20180223
  Transmission Date: 20180509
  Serious: Yes (Hospitalization)
  Sender: FDA-Public Use
  Company Number: CZ-ROCHE-2005340

PATIENT
  Age: 63 Year
  Sex: Male

DRUGS (7)
  1. OBINUTUZUMAB. [Suspect]
     Active Substance: OBINUTUZUMAB
     Indication: CHRONIC LYMPHOCYTIC LEUKAEMIA
     Route: 065
     Dates: end: 20160126
  2. MADOPAR [Concomitant]
     Active Substance: BENSERAZIDE HYDROCHLORIDE\LEVODOPA
     Indication: PARKINSON^S DISEASE
     Route: 065
     Dates: start: 201310
  3. IBRUTINIB [Suspect]
     Active Substance: IBRUTINIB
     Indication: CHRONIC LYMPHOCYTIC LEUKAEMIA
     Dosage: LAST DOSE PRIOR TO SAE 04/OCT/2017
     Route: 065
     Dates: start: 20160923, end: 20171005
  4. VIREGYT [Concomitant]
     Indication: PARKINSON^S DISEASE
     Dosage: 1 DROP
     Route: 065
     Dates: start: 200810
  5. BETAMED (CZECH REPUBLIC) [Concomitant]
     Indication: HYPERTENSION
     Route: 065
     Dates: start: 2010
  6. RILMENIDINE [Concomitant]
     Active Substance: RILMENIDINE
     Indication: HYPERTENSION
     Route: 065
     Dates: start: 2010
  7. MILURIT [Concomitant]
     Active Substance: ALLOPURINOL
     Indication: HYPERURICAEMIA
     Route: 065
     Dates: start: 2005

REACTIONS (1)
  - Acarodermatitis [Recovered/Resolved]

NARRATIVE: CASE EVENT DATE: 20171004
